FAERS Safety Report 12653318 (Version 2)
Quarter: 2016Q3

REPORT INFORMATION
  Report Type: Report from Study
  Country: US (occurrence: US)
  Receive Date: 20160815
  Receipt Date: 20160816
  Transmission Date: 20161109
  Serious: Yes (Other)
  Sender: FDA-Public Use
  Company Number: US-ABBVIE-16P-163-1697330-00

PATIENT
  Age: 58 Year
  Sex: Male
  Weight: 56.75 kg

DRUGS (4)
  1. AMOXICILLIN. [Concomitant]
     Active Substance: AMOXICILLIN
     Indication: DENTAL CARIES
  2. VIEKIRA PAK [Suspect]
     Active Substance: DASABUVIR\OMBITASVIR\PARITAPREVIR\RITONAVIR
     Indication: HEPATITIS C
     Route: 048
     Dates: start: 201602, end: 201605
  3. RIBAVIRIN. [Suspect]
     Active Substance: RIBAVIRIN
     Route: 048
     Dates: end: 2016
  4. RIBAVIRIN. [Suspect]
     Active Substance: RIBAVIRIN
     Indication: HEPATITIS C
     Route: 048
     Dates: start: 20160129, end: 20160421

REACTIONS (4)
  - Bone cancer [Unknown]
  - Prostate cancer [Not Recovered/Not Resolved]
  - Generalised erythema [Recovered/Resolved]
  - Prostatic specific antigen increased [Not Recovered/Not Resolved]

NARRATIVE: CASE EVENT DATE: 2016
